FAERS Safety Report 6463303-5 (Version None)
Quarter: 2009Q4

REPORT INFORMATION
  Report Type: 
  Country: None (occurrence: None)
  Receive Date: 20091130
  Receipt Date: 20090624
  Transmission Date: 20100525
  Serious: Yes (Hospitalization)
  Sender: FDA-Public Use
  Company Number: US-AMGEN-QUU347909

PATIENT
  Sex: Female
  Weight: 80.8 kg

DRUGS (5)
  1. ENBREL [Suspect]
     Indication: RHEUMATOID ARTHRITIS
     Route: 058
     Dates: start: 20060301, end: 20090101
  2. FOLIC ACID [Suspect]
     Dates: start: 20080701
  3. METHOTREXATE [Concomitant]
     Route: 048
     Dates: start: 20081110
  4. PROTONIX [Concomitant]
     Dates: start: 20011108
  5. ZESTRIL [Concomitant]
     Dates: start: 20000713

REACTIONS (3)
  - MYOCARDIAL INFARCTION [None]
  - RHEUMATOID ARTHRITIS [None]
  - VITAMIN D DECREASED [None]
